FAERS Safety Report 7355508-6 (Version None)
Quarter: 2011Q1

REPORT INFORMATION
  Report Type: 
  Country: None (occurrence: None)
  Receive Date: 20110316
  Receipt Date: 20110308
  Transmission Date: 20110831
  Serious: Yes (Hospitalization)
  Sender: FDA-Public Use
  Company Number: A0917264A

PATIENT
  Sex: Female
  Weight: 76.8 kg

DRUGS (2)
  1. FLOLAN [Suspect]
     Indication: PULMONARY HYPERTENSION
     Route: 042
  2. FLOLAN [Suspect]
     Indication: PULMONARY HYPERTENSION
     Dosage: 36.3NG UNKNOWN
     Route: 042
     Dates: start: 20100803

REACTIONS (1)
  - TRANSPLANT [None]
